APPROVED DRUG PRODUCT: VERAPAMIL HYDROCHLORIDE
Active Ingredient: VERAPAMIL HYDROCHLORIDE
Strength: 10MG/4ML (2.5MG/ML)
Dosage Form/Route: SOLUTION;INTRAVENOUS
Application: N018925 | Product #002
Applicant: EXELA PHARMA SCIENCES LLC
Approved: Apr 5, 2018 | RLD: No | RS: No | Type: DISCN